FAERS Safety Report 8536134 (Version 5)
Quarter: 2013Q4

REPORT INFORMATION
  Report Type: Report from Study
  Country: SK (occurrence: SK)
  Receive Date: 20120430
  Receipt Date: 20131230
  Transmission Date: 20140711
  Serious: Yes (Hospitalization)
  Sender: FDA-Public Use
  Company Number: SK-UCBSA-055951

PATIENT
  Age: 74 Year
  Sex: Female
  Weight: 74 kg

DRUGS (19)
  1. NEUPRO [Suspect]
     Indication: PARKINSON^S DISEASE
     Route: 062
     Dates: start: 20110325, end: 20120423
  2. NEUPRO [Suspect]
     Indication: PARKINSON^S DISEASE
     Route: 062
     Dates: start: 20110217, end: 20110325
  3. NEUPRO [Suspect]
     Indication: PARKINSON^S DISEASE
     Route: 062
     Dates: start: 20100503, end: 20110204
  4. NEUPRO [Suspect]
     Indication: PARKINSON^S DISEASE
     Route: 062
     Dates: start: 20100425, end: 20100502
  5. NEUPRO [Suspect]
     Indication: PARKINSON^S DISEASE
     Route: 062
     Dates: start: 20100417, end: 20100424
  6. NEUPRO [Suspect]
     Indication: PARKINSON^S DISEASE
     Route: 062
     Dates: start: 20100409, end: 20100416
  7. L-DOPA [Concomitant]
  8. STALEVO [Concomitant]
     Indication: PARKINSON^S DISEASE
     Dates: end: 20120423
  9. PK-MERZ [Concomitant]
     Indication: PARKINSON^S DISEASE
     Dates: end: 20120423
  10. EBRANTIL [Concomitant]
     Indication: HYPERTENSION
  11. CORVATON RETARD [Concomitant]
     Indication: CORONARY ARTERY DISEASE
  12. THIOCTACID [Concomitant]
     Indication: DIABETIC NEUROPATHY
  13. OLICARD [Concomitant]
     Indication: CORONARY ARTERY DISEASE
  14. MELYD [Concomitant]
     Indication: DIABETES MELLITUS
     Dosage: 2 MG ; 1-0-1/2 TBL
  15. GLYVENOL [Concomitant]
     Indication: VARICOSE VEIN
  16. BISOCARD [Concomitant]
     Indication: CORONARY ARTERY DISEASE
  17. TRITAZIDE [Concomitant]
     Indication: HYPERTENSION
  18. SIMVASTATIN [Concomitant]
     Indication: HYPERCHOLESTEROLAEMIA
  19. ANOPYRIN [Concomitant]
     Indication: CORONARY ARTERY DISEASE

REACTIONS (1)
  - Parkinson^s disease [Recovering/Resolving]
